FAERS Safety Report 19423501 (Version 1)
Quarter: 2021Q2

REPORT INFORMATION
  Report Type: Spontaneous
  Country: US (occurrence: US)
  Receive Date: 20210616
  Receipt Date: 20210616
  Transmission Date: 20210717
  Serious: Yes (Hospitalization)
  Sender: FDA-Public Use
  Company Number: US-009507513-2106USA002836

PATIENT
  Age: 72 Year
  Sex: Female

DRUGS (5)
  1. ENTRESTO [Concomitant]
     Active Substance: SACUBITRIL\VALSARTAN
  2. BUMEX [Concomitant]
     Active Substance: BUMETANIDE
  3. VERQUVO [Suspect]
     Active Substance: VERICIGUAT
     Indication: CARDIAC FAILURE
     Dosage: 2.5MG ONCE PER DAY
     Route: 048
     Dates: start: 20210601
  4. DIGITALIS [Concomitant]
     Active Substance: DIGITALIS
  5. TOPROL XL [Concomitant]
     Active Substance: METOPROLOL SUCCINATE

REACTIONS (2)
  - Blood creatinine increased [Unknown]
  - Dyspnoea [Unknown]

NARRATIVE: CASE EVENT DATE: 2021
